FAERS Safety Report 6314059-8 (Version None)
Quarter: 2009Q3

REPORT INFORMATION
  Report Type: 
  Country: None (occurrence: None)
  Receive Date: 20090818
  Receipt Date: 20090810
  Transmission Date: 20100115
  Serious: Yes (Hospitalization)
  Sender: FDA-Public Use
  Company Number: PHHO2008US10055

PATIENT
  Sex: Female
  Weight: 58.9 kg

DRUGS (13)
  1. RAD 666 RAD+TAB+CMAS [Suspect]
     Indication: GLIOBLASTOMA MULTIFORME
     Dosage: 10 MG / DAY
     Route: 048
     Dates: start: 20080417, end: 20080715
  2. LOVENOX [Concomitant]
  3. ZIAC [Concomitant]
  4. DEXAMETHASONE [Concomitant]
  5. ALPRAZOLAM [Concomitant]
  6. CRESTOR [Concomitant]
  7. GLIMEPIRIDE [Concomitant]
  8. ZETIA [Concomitant]
  9. TRICOR [Concomitant]
  10. JANUVIA [Concomitant]
  11. LISINOPRIL [Concomitant]
  12. METFORMIN HCL [Concomitant]
  13. LOVAZA [Concomitant]

REACTIONS (9)
  - ANAEMIA [None]
  - DEHYDRATION [None]
  - DIARRHOEA [None]
  - ENTEROCOCCAL INFECTION [None]
  - FATIGUE [None]
  - HYPERGLYCAEMIA [None]
  - HYPOGLYCAEMIA [None]
  - LEUKOPENIA [None]
  - PSEUDOMONAS INFECTION [None]
